FAERS Safety Report 6570131-9 (Version None)
Quarter: 2010Q1

REPORT INFORMATION
  Report Type: 
  Country: None (occurrence: None)
  Receive Date: 20100204
  Receipt Date: 20100125
  Transmission Date: 20100710
  Serious: Yes (Hospitalization, Other)
  Sender: FDA-Public Use
  Company Number: US-CELGENEUS-163-21880-09122361

PATIENT
  Sex: Female

DRUGS (1)
  1. REVLIMID [Suspect]
     Indication: MULTIPLE MYELOMA
     Route: 048
     Dates: start: 20091117, end: 20091228

REACTIONS (5)
  - ATRIAL FIBRILLATION [None]
  - HAEMORRHAGE [None]
  - ILEUS PARALYTIC [None]
  - PNEUMONIA [None]
  - RENAL FAILURE [None]
